FAERS Safety Report 6343649-1 (Version None)
Quarter: 2009Q3

REPORT INFORMATION
  Report Type: 
  Country: None (occurrence: None)
  Receive Date: 20090908
  Receipt Date: 20090827
  Transmission Date: 20100115
  Serious: Yes (Hospitalization)
  Sender: FDA-Public Use
  Company Number: US-ROCHE-653455

PATIENT
  Sex: Female
  Weight: 64 kg

DRUGS (12)
  1. DACLIZUMAB [Suspect]
     Indication: RENAL TRANSPLANT
     Dosage: FORM: INFUSION, FREQUENCY: QOW
     Route: 042
     Dates: start: 20060315, end: 20060315
  2. DACLIZUMAB [Suspect]
     Dosage: FORM: INFUSION, FREQUENCY: QOW
     Route: 042
     Dates: start: 20060327, end: 20060327
  3. DACLIZUMAB [Suspect]
     Dosage: FORM: INFUSION, FREQUENCY: QOW
     Route: 042
     Dates: start: 20060410, end: 20060410
  4. DACLIZUMAB [Suspect]
     Dosage: FORM: INFUSION, FREQUENCY: QOW
     Route: 042
     Dates: start: 20060424, end: 20060424
  5. DACLIZUMAB [Suspect]
     Route: 042
     Dates: start: 20060508, end: 20060508
  6. FAMOTIDINE [Concomitant]
     Dates: start: 20060315
  7. HYDROCORTISONE CREAM [Concomitant]
     Dates: start: 20070604
  8. PROGRAF [Concomitant]
     Dates: start: 20060314
  9. CELLCEPT [Concomitant]
     Dates: start: 20060315
  10. CELLCEPT [Concomitant]
     Dates: start: 20090416, end: 20090417
  11. PREDNISONE TAB [Concomitant]
  12. METHYLPREDNISOLONE [Concomitant]
     Dosage: DRUG REPORTED AS SOLUMEDROL
     Dates: start: 20060315

REACTIONS (1)
  - TRANSPLANT REJECTION [None]
